FAERS Safety Report 7328141-X (Version None)
Quarter: 2011Q1

REPORT INFORMATION
  Report Type: 
  Country: None (occurrence: None)
  Receive Date: 20110303
  Receipt Date: 20110218
  Transmission Date: 20110831
  Serious: Yes (Other)
  Sender: FDA-Public Use
  Company Number: PHHY2011ES16102

PATIENT
  Age: 36 Year
  Sex: Female

DRUGS (1)
  1. METHERGINE [Suspect]
     Dosage: UNK
     Dates: start: 20101227

REACTIONS (1)
  - BRONCHOSPASM [None]
